FAERS Safety Report 15027597 (Version 1)
Quarter: 2018Q2

REPORT INFORMATION
  Report Type: Spontaneous
  Country: US (occurrence: US)
  Receive Date: 20180619
  Receipt Date: 20180619
  Transmission Date: 20180711
  Serious: Yes (Life-Threatening, Hospitalization, Other)
  Sender: FDA-Public Use
  Company Number: US-AXELLIA-001751

PATIENT
  Age: 71 Year
  Sex: Male

DRUGS (3)
  1. VANCOMYCIN [Suspect]
     Active Substance: VANCOMYCIN
     Indication: TOXIC SHOCK SYNDROME STAPHYLOCOCCAL
  2. IMMUNOGLOBULIN (IVIG) [Suspect]
     Active Substance: HUMAN IMMUNOGLOBULIN G
     Indication: TOXIC SHOCK SYNDROME STAPHYLOCOCCAL
     Route: 042
  3. CLINDAMYCIN. [Suspect]
     Active Substance: CLINDAMYCIN
     Indication: TOXIC SHOCK SYNDROME STAPHYLOCOCCAL

REACTIONS (5)
  - Respiratory failure [None]
  - Renal failure [None]
  - Drug ineffective [Unknown]
  - Hepatic failure [None]
  - Multiple organ dysfunction syndrome [None]
